FAERS Safety Report 8696253 (Version 2)
Quarter: 2013Q4

REPORT INFORMATION
  Report Type: Spontaneous
  Country: US (occurrence: US)
  Receive Date: 20120801
  Receipt Date: 20131101
  Transmission Date: 20140711
  Serious: No
  Sender: FDA-Public Use
  Company Number: US-009507513-1208USA000168

PATIENT
  Sex: Female

DRUGS (2)
  1. EMEND FOR INJECTION [Suspect]
  2. DOXORUBICIN [Concomitant]
     Indication: CHEMOTHERAPY

REACTIONS (5)
  - Infusion site pain [Unknown]
  - Infusion site pain [Unknown]
  - Infusion site rash [Unknown]
  - Pain in extremity [Unknown]
  - Infusion site pruritus [Unknown]
